FAERS Safety Report 5693900-6 (Version None)
Quarter: 2008Q2

REPORT INFORMATION
  Report Type: 
  Country: None (occurrence: None)
  Receive Date: 20080403
  Receipt Date: 20080325
  Transmission Date: 20081010
  Serious: Yes (Hospitalization)
  Sender: FDA-Public Use
  Company Number: JP-PFIZER INC-2008011057

PATIENT
  Sex: Male
  Weight: 55 kg

DRUGS (13)
  1. ZYVOX [Suspect]
     Indication: WOUND INFECTION STAPHYLOCOCCAL
     Route: 042
     Dates: start: 20071223, end: 20080129
  2. WARFARIN SODIUM [Concomitant]
     Route: 048
  3. LASIX [Concomitant]
     Route: 048
  4. ENALAPRIL MALEATE [Concomitant]
     Route: 048
  5. DIOVAN [Concomitant]
     Route: 048
  6. ASPIRIN [Concomitant]
     Route: 048
  7. PROCYLIN [Concomitant]
     Route: 048
  8. ADALAT [Concomitant]
     Route: 048
  9. OMEPRAL [Concomitant]
     Route: 048
  10. KALIMATE [Concomitant]
     Route: 048
  11. PRIMPERAN INJ [Concomitant]
     Route: 048
     Dates: start: 20080126
  12. SODIUM CHLORIDE [Concomitant]
     Route: 042
     Dates: start: 20080124
  13. ALL OTHER THERAPEUTIC PRODUCTS [Concomitant]
     Route: 042
     Dates: start: 20080124

REACTIONS (1)
  - BONE MARROW FAILURE [None]
